FAERS Safety Report 12632402 (Version 2)
Quarter: 2016Q3

REPORT INFORMATION
  Report Type: Spontaneous
  Country: US (occurrence: US)
  Receive Date: 20160808
  Receipt Date: 20160808
  Transmission Date: 20161109
  Serious: No
  Sender: FDA-Public Use
  Company Number: US-BEH-2016062727

PATIENT
  Sex: Male
  Weight: 89 kg

DRUGS (28)
  1. HIZENTRA [Suspect]
     Active Substance: HUMAN IMMUNOGLOBULIN G
     Route: 058
  2. EPIPEN [Concomitant]
     Active Substance: EPINEPHRINE
  3. PANTOPRAZOLE [Concomitant]
     Active Substance: PANTOPRAZOLE SODIUM
  4. CLOPIDOGREL [Concomitant]
     Active Substance: CLOPIDOGREL BISULFATE
  5. TAMSULOSIN [Concomitant]
     Active Substance: TAMSULOSIN
  6. GLYCERYL TRINITRATE [Concomitant]
     Active Substance: NITROGLYCERIN
  7. CEFUROXIME. [Concomitant]
     Active Substance: CEFUROXIME
  8. HIZENTRA [Suspect]
     Active Substance: HUMAN IMMUNOGLOBULIN G
     Indication: IMMUNODEFICIENCY COMMON VARIABLE
     Route: 058
  9. LIDOCAINE. [Concomitant]
     Active Substance: LIDOCAINE
  10. MYCOPHENOLATE MOFETIL. [Concomitant]
     Active Substance: MYCOPHENOLATE MOFETIL
  11. BACTRIM DS [Concomitant]
     Active Substance: SULFAMETHOXAZOLE\TRIMETHOPRIM
  12. ROPINIROLE. [Concomitant]
     Active Substance: ROPINIROLE
  13. DIPHENHYDRAMINE. [Concomitant]
     Active Substance: DIPHENHYDRAMINE
  14. VITAMIN B-6 [Concomitant]
     Active Substance: PYRIDOXINE
  15. ZOFRAN [Concomitant]
     Active Substance: ONDANSETRON HYDROCHLORIDE
  16. FORTEO [Concomitant]
     Active Substance: TERIPARATIDE
  17. VALTREX [Concomitant]
     Active Substance: VALACYCLOVIR HYDROCHLORIDE
  18. ACETAMINOPHEN. [Concomitant]
     Active Substance: ACETAMINOPHEN
  19. PREDNISOLONE. [Concomitant]
     Active Substance: PREDNISOLONE
  20. ASPIRIN EC [Concomitant]
     Active Substance: ASPIRIN
  21. HIZENTRA [Suspect]
     Active Substance: HUMAN IMMUNOGLOBULIN G
     Indication: HYPOGAMMAGLOBULINAEMIA
     Route: 058
  22. FLONASE [Concomitant]
     Active Substance: FLUTICASONE PROPIONATE
  23. FLUOXETINE [Concomitant]
     Active Substance: FLUOXETINE HYDROCHLORIDE
  24. VITAMIN A+D [Concomitant]
  25. GABAPENTIN. [Concomitant]
     Active Substance: GABAPENTIN
  26. ATORVASTATIN [Concomitant]
     Active Substance: ATORVASTATIN
  27. LATANOPROST. [Concomitant]
     Active Substance: LATANOPROST
  28. NORCO [Concomitant]
     Active Substance: ACETAMINOPHEN\HYDROCODONE BITARTRATE

REACTIONS (1)
  - Abdominal discomfort [Unknown]
